FAERS Safety Report 8539928-X (Version None)
Quarter: 2012Q2

REPORT INFORMATION
  Report Type: 
  Country: None (occurrence: None)
  Receive Date: 20120412
  Receipt Date: 20090107
  Transmission Date: 20120825
  Serious: Yes (Disabling, Other)
  Sender: FDA-Public Use
  Company Number: PHEH2004US03639

PATIENT
  Age: 58 Year
  Sex: Female

DRUGS (8)
  1. OXYCONTIN [Concomitant]
  2. AREDIA [Suspect]
     Indication: MULTIPLE MYELOMA
     Dosage: 90 MG, QMO, INTRAVENOUS
     Route: 042
     Dates: start: 20000101, end: 20020701
  3. ATIVAN [Concomitant]
  4. ADRIAMYCIN PFS [Concomitant]
  5. DAUNORUBICIN HCL [Concomitant]
  6. PAXIL [Concomitant]
  7. VINCRISTINE [Concomitant]
  8. ZANTAC [Concomitant]

REACTIONS (4)
  - BONE DISORDER [None]
  - PAIN [None]
  - OSTEONECROSIS [None]
  - ABSCESS DRAINAGE [None]
